FAERS Safety Report 24024796 (Version 2)
Quarter: 2024Q3

REPORT INFORMATION
  Report Type: Report from Study
  Country: CN (occurrence: CN)
  Receive Date: 20240628
  Receipt Date: 20240710
  Transmission Date: 20241016
  Serious: No
  Sender: ROCHE
  Company Number: CN-ROCHE-3485541

PATIENT
  Age: 64 Year
  Sex: Female
  Weight: 51.0 kg

DRUGS (8)
  1. ALECTINIB [Suspect]
     Active Substance: ALECTINIB
     Indication: Non-small cell lung cancer metastatic
     Route: 048
     Dates: start: 20210929
  2. ALECTINIB [Suspect]
     Active Substance: ALECTINIB
     Route: 048
     Dates: start: 20200926
  3. URSODIOL [Concomitant]
     Active Substance: URSODIOL
     Indication: Blood bilirubin increased
     Dosage: PILL
     Route: 048
     Dates: start: 20210927
  4. MANNATIDE [Concomitant]
     Route: 050
     Dates: start: 20220615, end: 20220616
  5. MANNATIDE [Concomitant]
     Route: 050
     Dates: start: 20220713, end: 20220715
  6. ZOLEDRONIC ACID [Concomitant]
     Active Substance: ZOLEDRONIC ACID
     Indication: Metastases to bone
     Route: 050
     Dates: start: 202207, end: 202209
  7. DEXAMETHASONE [Concomitant]
     Active Substance: DEXAMETHASONE
     Route: 050
     Dates: start: 20220616, end: 20220616
  8. XIN BAO [Concomitant]
     Indication: Sinus bradycardia
     Route: 048
     Dates: start: 20220411

REACTIONS (1)
  - Sinus bradycardia [Recovered/Resolved]

NARRATIVE: CASE EVENT DATE: 20220714
